FAERS Safety Report 4952116-9 (Version None)
Quarter: 2006Q1

REPORT INFORMATION
  Report Type: 
  Country: None (occurrence: None)
  Receive Date: 20060320
  Receipt Date: 20060308
  Transmission Date: 20060701
  Serious: Yes (Other)
  Sender: FDA-Public Use
  Company Number: 2006BH004639

PATIENT
  Age: 58 Year
  Sex: Male

DRUGS (1)
  1. HEPARIN SODIUM [Suspect]
     Indication: DRUG USE FOR UNKNOWN INDICATION
     Dosage: 5000 UNITS 2X A DAY SC
     Route: 058

REACTIONS (4)
  - HEPARIN-INDUCED THROMBOCYTOPENIA [None]
  - PULMONARY EMBOLISM [None]
  - SENSORY LOSS [None]
  - THROMBOTIC THROMBOCYTOPENIC PURPURA [None]
